FAERS Safety Report 7044684-0 (Version None)
Quarter: 2010Q4

REPORT INFORMATION
  Report Type: 
  Country: None (occurrence: None)
  Receive Date: 20101013
  Receipt Date: 20101013
  Transmission Date: 20110411
  Serious: No
  Sender: FDA-Public Use
  Company Number: None

PATIENT

DRUGS (2)
  1. PHENYLEPHRINE 100 MCG/ML- 10ML SYRINGE PHARMEDIUM [Suspect]
  2. EPHEDRINE 5MG/ML- 10ML SYRINGE PHARMEDIUM [Suspect]

REACTIONS (3)
  - CIRCUMSTANCE OR INFORMATION CAPABLE OF LEADING TO MEDICATION ERROR [None]
  - MEDICATION ERROR [None]
  - PRODUCT LABEL ISSUE [None]
